FAERS Safety Report 5263563-2 (Version None)
Quarter: 2007Q1

REPORT INFORMATION
  Report Type: 
  Country: None (occurrence: None)
  Receive Date: 20070313
  Receipt Date: 20070228
  Transmission Date: 20070707
  Serious: No
  Sender: FDA-Public Use
  Company Number: PHEH2007US02578

PATIENT
  Age: 73 Year
  Sex: Male

DRUGS (1)
  1. LOTREL [Suspect]
     Indication: HYPERTENSION
     Dosage: 5/10 MG, QD
     Route: 048

REACTIONS (3)
  - BLOOD CREATININE INCREASED [None]
  - COUGH [None]
  - PROTEIN URINE PRESENT [None]
